FAERS Safety Report 25853538 (Version 3)
Quarter: 2025Q4

REPORT INFORMATION
  Report Type: Spontaneous
  Country: JP (occurrence: JP)
  Receive Date: 20250926
  Receipt Date: 20251106
  Transmission Date: 20260118
  Serious: Yes (Hospitalization)
  Sender: AMGEN
  Company Number: JP-KISSEI-TV20250969_P_1

PATIENT
  Age: 77 Year
  Sex: Female
  Weight: 47 kg

DRUGS (17)
  1. TAVNEOS [Suspect]
     Active Substance: AVACOPAN
     Indication: Microscopic polyangiitis
     Dosage: 30 MG, BID
     Route: 048
     Dates: start: 20250729, end: 20250905
  2. RITUXIMAB [Suspect]
     Active Substance: RITUXIMAB
     Indication: Microscopic polyangiitis
     Dosage: 500 MILLIGRAM
     Route: 040
     Dates: start: 20250626, end: 20250626
  3. RITUXIMAB [Suspect]
     Active Substance: RITUXIMAB
     Dosage: 500 MILLIGRAM
     Route: 040
     Dates: start: 20250703, end: 20250703
  4. RITUXIMAB [Suspect]
     Active Substance: RITUXIMAB
     Dosage: 500 MILLIGRAM
     Route: 040
     Dates: start: 20250710, end: 20250710
  5. RITUXIMAB [Suspect]
     Active Substance: RITUXIMAB
     Dosage: 500 MILLIGRAM
     Route: 040
     Dates: start: 20250717, end: 20250717
  6. PREDNISOLONE [Suspect]
     Active Substance: PREDNISOLONE
     Indication: Microscopic polyangiitis
     Dosage: 15 MG, BID
     Route: 048
     Dates: start: 20250612
  7. PREDNISOLONE [Suspect]
     Active Substance: PREDNISOLONE
     Dosage: 40 MG, QD
     Route: 048
     Dates: start: 20250623
  8. BOS TAURUS ADRENAL CORTEX CORTICOSTEROIDS [Concomitant]
     Active Substance: BOS TAURUS ADRENAL CORTEX CORTICOSTEROIDS
     Indication: Microscopic polyangiitis
     Dosage: UNK
     Route: 065
  9. NICORANDIL [Concomitant]
     Active Substance: NICORANDIL
     Indication: Prinzmetal angina
     Dosage: 5 MG, TID
     Route: 048
  10. ASPIRIN [Concomitant]
     Active Substance: ASPIRIN
     Indication: Prinzmetal angina
     Dosage: 100 MG, QD
     Route: 048
  11. ROSUVASTATIN [Concomitant]
     Active Substance: ROSUVASTATIN
     Indication: Dyslipidaemia
     Dosage: 2.5 MILLIGRAM, QD
     Route: 048
  12. EZETIMIBE [Concomitant]
     Active Substance: EZETIMIBE
     Indication: Dyslipidaemia
     Dosage: 10 MG, QD
     Route: 048
  13. DAPRODUSTAT [Concomitant]
     Active Substance: DAPRODUSTAT
     Indication: Nephrogenic anaemia
     Dosage: 4 MILLIGRAM, QD
     Route: 048
     Dates: start: 20250621
  14. ATOVAQUONE [Concomitant]
     Active Substance: ATOVAQUONE
     Indication: Microscopic polyangiitis
     Dosage: 10 ML, QD
     Route: 048
     Dates: start: 20250623
  15. CANDESARTAN [Concomitant]
     Active Substance: CANDESARTAN
     Indication: Hypertension
     Dosage: 4 MG, QD
     Route: 048
  16. VONOPRAZAN FUMARATE [Concomitant]
     Active Substance: VONOPRAZAN FUMARATE
     Indication: Microscopic polyangiitis
     Dosage: 10 MG, QD
     Route: 048
  17. FUROSEMIDE [Concomitant]
     Active Substance: FUROSEMIDE
     Indication: Hypertension
     Dosage: 10 MG, QD
     Route: 048
     Dates: start: 20250723

REACTIONS (4)
  - Fungal infection [Recovering/Resolving]
  - Bronchopulmonary aspergillosis [Recovering/Resolving]
  - Enterocolitis [Recovered/Resolved]
  - Hepatic function abnormal [Recovered/Resolved]

NARRATIVE: CASE EVENT DATE: 20250808
